FAERS Safety Report 5636757-1 (Version None)
Quarter: 2008Q1

REPORT INFORMATION
  Report Type: 
  Country: None (occurrence: None)
  Receive Date: 20080219
  Receipt Date: 20080204
  Transmission Date: 20080703
  Serious: Yes (Hospitalization, Other)
  Sender: FDA-Public Use
  Company Number: 2008S1001830

PATIENT
  Age: 67 Year
  Sex: Male

DRUGS (3)
  1. ACYCLOVIR [Suspect]
     Indication: ENCEPHALITIS HERPES
     Dosage: 800 MG; DAILY; ORAL, INTRAVENOUS
     Route: 042
  2. PREDNISOLONE [Concomitant]
  3. GLIPIZIDE [Concomitant]

REACTIONS (2)
  - NEUROTOXICITY [None]
  - RENAL FAILURE ACUTE [None]
